FAERS Safety Report 11822386 (Version 5)
Quarter: 2016Q2

REPORT INFORMATION
  Report Type: Spontaneous
  Country: US (occurrence: US)
  Receive Date: 20151210
  Receipt Date: 20160601
  Transmission Date: 20160815
  Serious: No
  Sender: FDA-Public Use
  Company Number: US-JNJFOC-20150514564

PATIENT
  Age: 72 Year
  Sex: Female

DRUGS (7)
  1. IMBRUVICA [Suspect]
     Active Substance: IBRUTINIB
     Indication: CHRONIC LYMPHOCYTIC LEUKAEMIA REFRACTORY
     Route: 048
     Dates: start: 201512, end: 20160303
  2. IMBRUVICA [Suspect]
     Active Substance: IBRUTINIB
     Indication: CHRONIC LYMPHOCYTIC LEUKAEMIA REFRACTORY
     Route: 048
  3. IMBRUVICA [Suspect]
     Active Substance: IBRUTINIB
     Indication: CHRONIC LYMPHOCYTIC LEUKAEMIA REFRACTORY
     Route: 048
     Dates: start: 20150312
  4. PROZAC [Concomitant]
     Active Substance: FLUOXETINE HYDROCHLORIDE
  5. TRIAMTERENE. [Concomitant]
     Active Substance: TRIAMTERENE
  6. IMBRUVICA [Suspect]
     Active Substance: IBRUTINIB
     Indication: CHRONIC LYMPHOCYTIC LEUKAEMIA REFRACTORY
     Route: 048
     Dates: start: 2015, end: 20150703
  7. ACIPHEX [Concomitant]
     Active Substance: RABEPRAZOLE SODIUM

REACTIONS (26)
  - Flushing [Recovered/Resolved]
  - Swelling [Unknown]
  - Sinusitis [Unknown]
  - Dry skin [Recovered/Resolved]
  - Epistaxis [Recovering/Resolving]
  - Hypoaesthesia [Unknown]
  - Diarrhoea [Not Recovered/Not Resolved]
  - Muscle spasms [Not Recovered/Not Resolved]
  - Dyspepsia [Unknown]
  - Pain in extremity [Unknown]
  - Myalgia [Unknown]
  - Asthenia [Not Recovered/Not Resolved]
  - Cystitis [Unknown]
  - Flatulence [Not Recovered/Not Resolved]
  - Contusion [Not Recovered/Not Resolved]
  - Abdominal pain [Not Recovered/Not Resolved]
  - Erythema [Unknown]
  - White blood cell count increased [Recovering/Resolving]
  - Respiratory tract infection [Recovered/Resolved]
  - Pyrexia [Unknown]
  - Urinary bladder haemorrhage [Recovered/Resolved]
  - Visual impairment [Not Recovered/Not Resolved]
  - Back pain [Unknown]
  - Bone pain [Unknown]
  - Headache [Unknown]
  - Weight increased [Unknown]

NARRATIVE: CASE EVENT DATE: 2015
